FAERS Safety Report 8869389 (Version 1)
Quarter: 2012Q4

REPORT INFORMATION
  Report Type: Spontaneous
  Country: US (occurrence: None)
  Receive Date: 20121025
  Receipt Date: 20121025
  Transmission Date: 20130627
  Serious: No
  Sender: FDA-Public Use
  Company Number: None

PATIENT
  Age: 39 Year
  Sex: Female
  Weight: 52.62 kg

DRUGS (2)
  1. HYDROQUINONE [Suspect]
     Indication: SUN SPOTS
     Dosage: Light layer applied to spots Cutaneous
     Dates: start: 20120809, end: 20120823
  2. HYDROQUINONE [Suspect]
     Indication: SUN SPOTS
     Dosage: Light layer applied to spots Cutaneous
     Dates: start: 20121009, end: 20121023

REACTIONS (2)
  - Application site discolouration [None]
  - Skin disorder [None]
